FAERS Safety Report 18740058 (Version 1)
Quarter: 2021Q1

REPORT INFORMATION
  Report Type: Spontaneous
  Country: US (occurrence: US)
  Receive Date: 20210114
  Receipt Date: 20210114
  Transmission Date: 20210419
  Serious: No
  Sender: FDA-Public Use
  Company Number: US-DEXPHARM-20200666

PATIENT
  Age: 71 Year
  Sex: Male
  Weight: 104.76 kg

DRUGS (3)
  1. OMEPRAZOLE DELAYED RELEASE ORALLY DISINTEGRATING STRAWBERRY TABLETS 20 [Suspect]
     Active Substance: OMEPRAZOLE
     Indication: NAUSEA
     Dosage: 20 MG, TWICE
     Route: 048
     Dates: start: 20200725, end: 20200725
  2. TRIAMTERENE AND HYDROCHLOROTHIAZID [Concomitant]
     Active Substance: HYDROCHLOROTHIAZIDE\TRIAMTERENE
     Indication: DIURETIC THERAPY
     Dosage: UNK
     Route: 065
     Dates: start: 20200706
  3. MULTIVITAMINS, PLAIN [Concomitant]
     Active Substance: VITAMINS
     Indication: SUPPLEMENTATION THERAPY
     Dosage: UNK
     Route: 048

REACTIONS (2)
  - Peripheral swelling [Recovered/Resolved]
  - Pain in extremity [Recovered/Resolved]

NARRATIVE: CASE EVENT DATE: 20200725
